FAERS Safety Report 24153112 (Version 1)
Quarter: 2024Q3

REPORT INFORMATION
  Report Type: Spontaneous
  Country: UY (occurrence: UY)
  Receive Date: 20240730
  Receipt Date: 20240730
  Transmission Date: 20241017
  Serious: Yes (Other)
  Sender: BOEHRINGER INGELHEIM
  Company Number: UY-BoehringerIngelheim-2024-BI-042718

PATIENT
  Sex: Female

DRUGS (1)
  1. PRADAXA [Suspect]
     Active Substance: DABIGATRAN ETEXILATE MESYLATE
     Indication: Product used for unknown indication

REACTIONS (3)
  - Fall [Unknown]
  - Head injury [Unknown]
  - Subarachnoid haemorrhage [Unknown]
